FAERS Safety Report 10514056 (Version 1)
Quarter: 2014Q4

REPORT INFORMATION
  Report Type: Spontaneous
  Country: US (occurrence: US)
  Receive Date: 20141013
  Receipt Date: 20141013
  Transmission Date: 20150528
  Serious: No
  Sender: FDA-Public Use
  Company Number: US-MALLINCKRODT-T201402363

PATIENT
  Sex: Male
  Weight: 74.83 kg

DRUGS (1)
  1. MIXED AMPHETAMINE SALTS [Suspect]
     Active Substance: AMPHETAMINE ASPARTATE\AMPHETAMINE SULFATE\DEXTROAMPHETAMINE SACCHARATE\DEXTROAMPHETAMINE SULFATE
     Indication: ATTENTION DEFICIT/HYPERACTIVITY DISORDER
     Dosage: 20 MG QD (AT ABOUT 1230 PM QD)
     Route: 065
     Dates: start: 201402

REACTIONS (3)
  - Drug screen negative [Unknown]
  - Drug effect decreased [Unknown]
  - Hypervigilance [Unknown]
